FAERS Safety Report 6963452-9 (Version None)
Quarter: 2010Q3

REPORT INFORMATION
  Report Type: 
  Country: None (occurrence: None)
  Receive Date: 20100902
  Receipt Date: 20100826
  Transmission Date: 20110219
  Serious: Yes (Hospitalization)
  Sender: FDA-Public Use
  Company Number: B0671686A

PATIENT
  Age: 63 Year
  Sex: Female

DRUGS (7)
  1. CEFTAZIDIME [Suspect]
     Dosage: 2G THREE TIMES PER DAY
     Route: 042
     Dates: start: 20100409, end: 20100412
  2. AMOXICILLIN [Suspect]
     Route: 065
     Dates: start: 20100408, end: 20100409
  3. PREVISCAN [Suspect]
     Route: 048
     Dates: start: 20100412, end: 20100422
  4. AMIKIN [Suspect]
     Route: 042
     Dates: start: 20100409, end: 20100412
  5. CLAFORAN [Suspect]
     Dosage: 1G THREE TIMES PER DAY
     Route: 042
     Dates: start: 20100331, end: 20100407
  6. FLAGYL [Suspect]
     Dosage: 500MG THREE TIMES PER DAY
     Route: 042
     Dates: start: 20100331, end: 20100407
  7. GENTAMICIN [Concomitant]
     Route: 065
     Dates: start: 20100331, end: 20100402

REACTIONS (3)
  - ANAEMIA [None]
  - HAEMATOMA [None]
  - RED BLOOD CELL COUNT DECREASED [None]
